FAERS Safety Report 18505279 (Version 1)
Quarter: 2020Q4

REPORT INFORMATION
  Report Type: Spontaneous
  Country: ES (occurrence: ES)
  Receive Date: 20201116
  Receipt Date: 20201116
  Transmission Date: 20210114
  Serious: Yes (Death, Congenital Anomaly)
  Sender: FDA-Public Use
  Company Number: ES-ABBVIE-20K-144-3651951-00

PATIENT

DRUGS (1)
  1. HUMIRA [Suspect]
     Active Substance: ADALIMUMAB
     Indication: MATERNAL EXPOSURE TIMING UNSPECIFIED
     Route: 064
     Dates: start: 20151015, end: 20191130

REACTIONS (5)
  - Hemimegalencephaly [Fatal]
  - Foetal exposure during pregnancy [Fatal]
  - Brain malformation [Fatal]
  - Polymicrogyria [Fatal]
  - Chromosomal mutation [Fatal]

NARRATIVE: CASE EVENT DATE: 20200415
